FAERS Safety Report 5994436-5 (Version None)
Quarter: 2008Q4

REPORT INFORMATION
  Report Type: 
  Country: None (occurrence: None)
  Receive Date: 20081212
  Receipt Date: 20080910
  Transmission Date: 20090506
  Serious: No
  Sender: FDA-Public Use
  Company Number: US-ABBOTT-08P-163-0475277-00

PATIENT
  Sex: Female
  Weight: 59.02 kg

DRUGS (1)
  1. HUMIRA [Suspect]
     Indication: CROHN'S DISEASE
     Route: 058
     Dates: start: 20080718, end: 20080801

REACTIONS (6)
  - ASTHENIA [None]
  - CONTUSION [None]
  - FATIGUE [None]
  - HEADACHE [None]
  - NAUSEA [None]
  - PALLOR [None]
